FAERS Safety Report 18170356 (Version 1)
Quarter: 2020Q3

REPORT INFORMATION
  Report Type: Spontaneous
  Country: CA (occurrence: CA)
  Receive Date: 20200819
  Receipt Date: 20200819
  Transmission Date: 20201103
  Serious: Yes (Other)
  Sender: FDA-Public Use
  Company Number: CA-BEH-2020121260

PATIENT
  Age: 53 Year
  Sex: Female

DRUGS (4)
  1. HUMAN IMMUNOGLOBULIN (INN) [Suspect]
     Active Substance: HUMAN IMMUNOGLOBULIN G
     Indication: PARANEOPLASTIC DERMATOMYOSITIS
     Dosage: 80 GRAM, QD
     Route: 042
  2. DALTEPARIN [Suspect]
     Active Substance: DALTEPARIN
     Indication: OVARIAN VEIN THROMBOSIS
     Route: 065
  3. METHYLPREDNISOLONE. [Suspect]
     Active Substance: METHYLPREDNISOLONE
     Indication: PARANEOPLASTIC DERMATOMYOSITIS
     Route: 042
  4. PREDNISOLONE. [Concomitant]
     Active Substance: PREDNISOLONE
     Route: 065

REACTIONS (3)
  - Product use in unapproved indication [Unknown]
  - No adverse event [Unknown]
  - Haemolytic anaemia [Unknown]
